FAERS Safety Report 9380662 (Version 1)
Quarter: 2013Q3

REPORT INFORMATION
  Report Type: Spontaneous
  Country: US (occurrence: US)
  Receive Date: 20130702
  Receipt Date: 20130702
  Transmission Date: 20140515
  Serious: Yes (Other)
  Sender: FDA-Public Use
  Company Number: CHPA2013US010552

PATIENT
  Age: 25 Year
  Sex: Female

DRUGS (3)
  1. CONTROL PLP [Suspect]
     Indication: SMOKING CESSATION THERAPY
     Dosage: 21 MG, QD
     Route: 062
     Dates: start: 20130624, end: 20130628
  2. METOPROLOL [Suspect]
     Indication: CHEST PAIN
     Dosage: UNK, UNK
     Route: 048
     Dates: start: 20130624
  3. BAYER ASPIRIN [Concomitant]
     Indication: CARDIAC DISORDER
     Dosage: 81 MG, UNK
     Route: 048
     Dates: start: 2013

REACTIONS (1)
  - Chest pain [Recovering/Resolving]
